FAERS Safety Report 8101479-4 (Version None)
Quarter: 2012Q1

REPORT INFORMATION
  Report Type: 
  Country: None (occurrence: None)
  Receive Date: 20120129
  Receipt Date: 20111009
  Transmission Date: 20120608
  Serious: No
  Sender: FDA-Public Use
  Company Number: US-ABBOTT-11P-163-0863082-00

PATIENT
  Age: 51 Year
  Sex: Male

DRUGS (11)
  1. HUMIRA [Suspect]
     Indication: CROHN'S DISEASE
     Dates: start: 20110802
  2. DICYCLOMINE [Concomitant]
     Indication: CROHN'S DISEASE
  3. HYDROCHLOROTHIAZIDE [Concomitant]
     Indication: BLOOD PRESSURE
  4. ATENOLOL [Concomitant]
     Indication: BLOOD PRESSURE
  5. MULTI-VITAMINS [Concomitant]
     Indication: VITAMIN SUPPLEMENTATION
  6. ASACOL [Concomitant]
     Indication: CROHN'S DISEASE
  7. ROPINIROLE [Concomitant]
     Indication: RESTLESS LEGS SYNDROME
  8. XANAX [Concomitant]
     Indication: ANXIETY
  9. HYDROCHLOROTHIAZIDE [Concomitant]
  10. BUSPIRONE HCL [Concomitant]
     Indication: DEPRESSION
  11. ATENOLOL [Concomitant]

REACTIONS (2)
  - INFLUENZA LIKE ILLNESS [None]
  - CLOSTRIDIAL INFECTION [None]
